FAERS Safety Report 18341171 (Version 1)
Quarter: 2020Q4

REPORT INFORMATION
  Report Type: Spontaneous
  Country: HR (occurrence: HR)
  Receive Date: 20201003
  Receipt Date: 20201003
  Transmission Date: 20210113
  Serious: Yes (Other)
  Sender: FDA-Public Use
  Company Number: HR-TEVA-2020-HR-1834268

PATIENT
  Age: 23 Year
  Sex: Male

DRUGS (5)
  1. NORVASC [Suspect]
     Active Substance: AMLODIPINE BESYLATE
     Route: 048
     Dates: start: 20200826, end: 20200826
  2. INDOMETACIN [Suspect]
     Active Substance: INDOMETHACIN
     Route: 048
     Dates: start: 20200826, end: 20200826
  3. AMLODIPINE [Suspect]
     Active Substance: AMLODIPINE BESYLATE
     Dosage: 15 MG,
     Route: 048
     Dates: start: 20200826, end: 20200826
  4. TRITAZIDE [Suspect]
     Active Substance: HYDROCHLOROTHIAZIDE\RAMIPRIL
     Route: 048
     Dates: start: 20200826, end: 20200826
  5. NORMABEL [Suspect]
     Active Substance: DIAZEPAM
     Dosage: 25 MG
     Route: 048
     Dates: start: 20200826, end: 20200826

REACTIONS (3)
  - No adverse event [Unknown]
  - Suicide attempt [Unknown]
  - Intentional overdose [Unknown]

NARRATIVE: CASE EVENT DATE: 20200826
